FAERS Safety Report 15138938 (Version 1)
Quarter: 2018Q3

REPORT INFORMATION
  Report Type: Spontaneous
  Country: IN (occurrence: IN)
  Receive Date: 20180713
  Receipt Date: 20180713
  Transmission Date: 20181010
  Serious: Yes (Hospitalization, Other)
  Sender: FDA-Public Use
  Company Number: IN-INVENTIA-000237

PATIENT
  Age: 45 Year
  Sex: Female

DRUGS (6)
  1. AMLODIPINE [Suspect]
     Active Substance: AMLODIPINE BESYLATE
     Indication: PRODUCT USED FOR UNKNOWN INDICATION
     Dosage: TEN 5?MG TABLETS OF AMLODIPINE
  2. METFORMIN [Suspect]
     Active Substance: METFORMIN HYDROCHLORIDE
     Indication: PRODUCT USED FOR UNKNOWN INDICATION
     Dosage: 500 MG TWICE DAILY (BID)
     Route: 048
  3. GLIMEPIRIDE. [Suspect]
     Active Substance: GLIMEPIRIDE
     Indication: PRODUCT USED FOR UNKNOWN INDICATION
     Dosage: 2 MG BID
     Route: 048
  4. ALPRAZOLAM. [Suspect]
     Active Substance: ALPRAZOLAM
     Indication: PRODUCT USED FOR UNKNOWN INDICATION
     Dosage: 0.5 MG AT BEDTIME
  5. TELMISARTAN. [Suspect]
     Active Substance: TELMISARTAN
     Indication: PRODUCT USED FOR UNKNOWN INDICATION
     Dosage: 40 MG OD, AT BEDTIME
  6. LEVOTHYROXINE. [Suspect]
     Active Substance: LEVOTHYROXINE
     Indication: PRODUCT USED FOR UNKNOWN INDICATION
     Dosage: 100 UG OD

REACTIONS (9)
  - Oliguria [Recovering/Resolving]
  - Suicide attempt [Unknown]
  - Seizure [Recovering/Resolving]
  - Bradycardia [Recovering/Resolving]
  - Oxygen saturation decreased [Recovering/Resolving]
  - Bradypnoea [Recovering/Resolving]
  - Toxicity to various agents [Recovering/Resolving]
  - Hypoglycaemia [Recovered/Resolved]
  - Hypotension [Recovering/Resolving]
